FAERS Safety Report 4519788-4 (Version None)
Quarter: 2004Q4

REPORT INFORMATION
  Report Type: 
  Country: None (occurrence: None)
  Receive Date: 20041202
  Receipt Date: 20041202
  Transmission Date: 20050328
  Serious: Yes (Life-Threatening, Hospitalization)
  Sender: FDA-Public Use
  Company Number: None

PATIENT
  Sex: Male
  Weight: 45 kg

DRUGS (19)
  1. ARA C [Suspect]
     Indication: ACUTE LYMPHOCYTIC LEUKAEMIA
     Route: 037
     Dates: start: 20040722
  2. VCR IV [Suspect]
     Indication: ACUTE LYMPHOCYTIC LEUKAEMIA
     Route: 042
     Dates: start: 20040722
  3. VCR IV [Suspect]
     Indication: ACUTE LYMPHOCYTIC LEUKAEMIA
     Route: 042
     Dates: start: 20040727
  4. VCR IV [Suspect]
     Indication: ACUTE LYMPHOCYTIC LEUKAEMIA
     Route: 042
     Dates: start: 20040805
  5. VCR IV [Suspect]
     Indication: ACUTE LYMPHOCYTIC LEUKAEMIA
     Route: 042
     Dates: start: 20040812
  6. DEXAMETHASONE PO [Suspect]
     Indication: ACUTE LYMPHOCYTIC LEUKAEMIA
     Route: 048
     Dates: start: 20040722, end: 20040804
  7. DAUNORUBICIN IV [Suspect]
     Indication: ACUTE LYMPHOCYTIC LEUKAEMIA
     Route: 042
     Dates: start: 20040722
  8. DAUNORUBICIN IV [Suspect]
     Indication: ACUTE LYMPHOCYTIC LEUKAEMIA
     Route: 042
     Dates: start: 20040729
  9. DAUNORUBICIN IV [Suspect]
     Indication: ACUTE LYMPHOCYTIC LEUKAEMIA
     Route: 042
     Dates: start: 20040805
  10. DAUNORUBICIN IV [Suspect]
     Indication: ACUTE LYMPHOCYTIC LEUKAEMIA
     Route: 042
     Dates: start: 20040812
  11. PEG-ASPARAGINASE IM [Concomitant]
     Indication: ACUTE LYMPHOCYTIC LEUKAEMIA
     Route: 030
     Dates: start: 20040725
  12. METHOTREXATE [Suspect]
     Indication: ACUTE LYMPHOCYTIC LEUKAEMIA
     Dates: start: 20040620
  13. METHOTREXATE [Suspect]
     Indication: ACUTE LYMPHOCYTIC LEUKAEMIA
     Dates: start: 20040727
  14. VALACYCLOVIR HCL [Concomitant]
  15. FLUCONAZOLE [Concomitant]
  16. MEROPENEM [Concomitant]
  17. CIPROFLOXACIN [Concomitant]
  18. DOPAMINE HCL [Concomitant]
  19. ADRENALIN IN OIL INJ [Concomitant]

REACTIONS (5)
  - CATHETER SITE CELLULITIS [None]
  - HYPOTENSION [None]
  - MYOSITIS [None]
  - NECROTISING FASCIITIS [None]
  - SERRATIA SEPSIS [None]
